FAERS Safety Report 25918603 (Version 1)
Quarter: 2025Q4

REPORT INFORMATION
  Report Type: Spontaneous
  Country: GB (occurrence: GB)
  Receive Date: 20251014
  Receipt Date: 20251014
  Transmission Date: 20260118
  Serious: Yes (Other)
  Sender: EPIC PHARM
  Company Number: GB-EPICPHARMA-GB-2025EPCLIT01150

PATIENT
  Sex: Male
  Weight: 53.8 kg

DRUGS (1)
  1. ZOLEDRONIC ACID [Suspect]
     Active Substance: ZOLEDRONIC ACID
     Indication: Juvenile Paget^s disease
     Dosage: FIRST DOSE
     Route: 042
     Dates: start: 2022

REACTIONS (4)
  - Deafness [Unknown]
  - Condition aggravated [Unknown]
  - Bone pain [Recovering/Resolving]
  - Product use in unapproved indication [Unknown]

NARRATIVE: CASE EVENT DATE: 20220101
